FAERS Safety Report 15229002 (Version 3)
Quarter: 2020Q4

REPORT INFORMATION
  Report Type: Report from Study
  Country: US (occurrence: US)
  Receive Date: 20180801
  Receipt Date: 20201112
  Transmission Date: 20210113
  Serious: Yes (Other)
  Sender: FDA-Public Use
  Company Number: US-AMGEN-USASL2017124954

PATIENT
  Age: 73 Year
  Sex: Male

DRUGS (1)
  1. NPLATE [Suspect]
     Active Substance: ROMIPLOSTIM
     Indication: IMMUNE THROMBOCYTOPENIA
     Dosage: WEEKLY AS NEEDED PER PLATELET COUNT
     Route: 065

REACTIONS (9)
  - Herpes zoster [Unknown]
  - Platelet count increased [Unknown]
  - Therapeutic product effect decreased [Unknown]
  - Neuropathy peripheral [Unknown]
  - Somnolence [Unknown]
  - Impaired driving ability [Unknown]
  - Fatigue [Unknown]
  - Cystitis [Recovering/Resolving]
  - Platelet count decreased [Recovering/Resolving]

NARRATIVE: CASE EVENT DATE: 2017
